FAERS Safety Report 25250184 (Version 1)
Quarter: 2025Q2

REPORT INFORMATION
  Report Type: Spontaneous
  Country: BR (occurrence: BR)
  Receive Date: 20250429
  Receipt Date: 20250429
  Transmission Date: 20250716
  Serious: Yes (Other)
  Sender: ROCHE
  Company Number: BR-ROCHE-10000267333

PATIENT
  Age: 29 Year
  Sex: Female

DRUGS (3)
  1. RITUXIMAB [Suspect]
     Active Substance: RITUXIMAB
     Indication: Multiple sclerosis
     Route: 065
     Dates: start: 201807, end: 201903
  2. DALFAMPRIDINE [Suspect]
     Active Substance: DALFAMPRIDINE
     Indication: Multiple sclerosis
     Route: 065
     Dates: start: 201810
  3. ALEMTUZUMAB [Concomitant]
     Active Substance: ALEMTUZUMAB
     Indication: Multiple sclerosis
     Dates: start: 201903

REACTIONS (11)
  - Off label use [Unknown]
  - Monoparesis [Unknown]
  - Ataxia [Unknown]
  - Therapy non-responder [Unknown]
  - Asthenia [Unknown]
  - Vision blurred [Unknown]
  - Gait disturbance [Unknown]
  - Neoplasm [Unknown]
  - Expanded disability status scale score increased [Unknown]
  - Motor dysfunction [Unknown]
  - Muscle spasticity [Unknown]

NARRATIVE: CASE EVENT DATE: 20181001
